FAERS Safety Report 25859117 (Version 1)
Quarter: 2025Q3

REPORT INFORMATION
  Report Type: Spontaneous
  Country: US (occurrence: None)
  Receive Date: 20250929
  Receipt Date: 20250929
  Transmission Date: 20251021
  Serious: Yes (Death)
  Sender: FDA-CTU
  Company Number: None

PATIENT
  Age: 76 Year
  Sex: Female

DRUGS (17)
  1. VELTASSA [Suspect]
     Active Substance: PATIROMER
     Indication: Hyperkalaemia
     Dosage: FREQUENCY : WEEKLY;?
     Route: 048
  2. HYDRALAZINE 50MG TABLETS(ORANGE) [Concomitant]
  3. ALLOPURINOL 100MG TABLETS [Concomitant]
  4. AMLODIPINE  BESYLATE 10MG TABLETS [Concomitant]
  5. ASPIRIN 81MG EC LOW DOSE TABLETS [Concomitant]
  6. CALCIUM 500 W/VIT D3 TABLETS [Concomitant]
  7. CARVEDILOL  25MG TABLETS [Concomitant]
  8. FLONASE 50MCG NAS SPRAY RX (120SPR) [Concomitant]
  9. GLIPIZIDE [Concomitant]
     Active Substance: GLIPIZIDE
  10. NOVOLOG MIX 70/30 FLXPEN  3ML (BLUE) [Concomitant]
  11. IRON 325MG TABLETS [Concomitant]
  12. ISOSORBIDE MONONITRATE 30MG ER TABS [Concomitant]
  13. LEVOTHYROXINE 0.150MG (150MCG)TAB [Concomitant]
  14. LOVASTATIN 10MG TABLETS [Concomitant]
  15. ZOLOFT 100MG TABLETS [Concomitant]
  16. TRAZODONE [Concomitant]
     Active Substance: TRAZODONE HYDROCHLORIDE
  17. VITAMIN D 1,000UNIT  CAPSULES [Concomitant]

REACTIONS (1)
  - Death [None]

NARRATIVE: CASE EVENT DATE: 20250606
